FAERS Safety Report 6865923-2 (Version None)
Quarter: 2010Q3

REPORT INFORMATION
  Report Type: 
  Country: None (occurrence: None)
  Receive Date: 20100719
  Receipt Date: 20100702
  Transmission Date: 20110219
  Serious: Yes (Disabling)
  Sender: FDA-Public Use
  Company Number: 638907

PATIENT
  Age: 62 Year
  Sex: Male

DRUGS (8)
  1. GENTAMICIN SULFATE [Suspect]
     Indication: DIVERTICULITIS
     Dosage: 450 MG MILLIGRAM(S), INTRAVENOUS
     Route: 042
     Dates: start: 20090624, end: 20090628
  2. ASPIRIN [Concomitant]
  3. (ATORVASTATIN) [Concomitant]
  4. AUGMENTIN '125' [Concomitant]
  5. FELODIPINE [Concomitant]
  6. METRONIDAZOLE [Concomitant]
  7. (MOVICOL  /01053601/) [Concomitant]
  8. (PARACETAMOL) [Concomitant]

REACTIONS (2)
  - ATAXIA [None]
  - VESTIBULAR DISORDER [None]
